FAERS Safety Report 7792282-3 (Version None)
Quarter: 2011Q4

REPORT INFORMATION
  Report Type: 
  Country: None (occurrence: None)
  Receive Date: 20111003
  Receipt Date: 20110927
  Transmission Date: 20120403
  Serious: Yes (Hospitalization)
  Sender: FDA-Public Use
  Company Number: PT-PFIZER INC-2011214022

PATIENT
  Age: 8 Year
  Sex: Female

DRUGS (5)
  1. PARACETAMOL [Concomitant]
     Indication: PYREXIA
     Route: 065
  2. BUDESONIDE [Concomitant]
     Indication: ASTHMA
     Route: 065
  3. ACYCLOVIR [Concomitant]
     Indication: VARICELLA
     Route: 048
  4. FORMOTEROL [Concomitant]
     Indication: ASTHMA
     Route: 065
  5. IBUPROFEN [Suspect]
     Indication: PYREXIA
     Route: 065

REACTIONS (3)
  - DISSEMINATED INTRAVASCULAR COAGULATION [None]
  - TOXIC SHOCK SYNDROME STREPTOCOCCAL [None]
  - NECROTISING FASCIITIS [None]
